FAERS Safety Report 6869120-6 (Version None)
Quarter: 2010Q3

REPORT INFORMATION
  Report Type: 
  Country: None (occurrence: None)
  Receive Date: 20100722
  Receipt Date: 20080708
  Transmission Date: 20110219
  Serious: No
  Sender: FDA-Public Use
  Company Number: US-PFIZER INC-2008056537

PATIENT
  Sex: Female
  Weight: 67.7 kg

DRUGS (11)
  1. CHANTIX [Suspect]
     Indication: SMOKING CESSATION THERAPY
     Route: 048
     Dates: start: 20080601, end: 20080707
  2. MICARDIS [Concomitant]
  3. FLUOXETINE [Concomitant]
  4. VYTORIN [Concomitant]
  5. UNIPHYL [Concomitant]
  6. ULTRAM [Concomitant]
  7. PANTOPRAZOLE [Concomitant]
  8. VITAMIN C [Concomitant]
  9. FUROSEMIDE [Concomitant]
  10. COMBINATIONS OF VITAMINS [Concomitant]
  11. OXYGEN [Concomitant]

REACTIONS (3)
  - FEELING ABNORMAL [None]
  - MALAISE [None]
  - NAUSEA [None]
